FAERS Safety Report 24858976 (Version 2)
Quarter: 2025Q1

REPORT INFORMATION
  Report Type: Spontaneous
  Country: US (occurrence: US)
  Receive Date: 20250118
  Receipt Date: 20250218
  Transmission Date: 20250408
  Serious: Yes (Disabling, Other)
  Sender: AMGEN
  Company Number: US-AMGEN-USASP2025006379

PATIENT
  Age: 57 Year
  Sex: Male

DRUGS (32)
  1. TEPEZZA [Suspect]
     Active Substance: TEPROTUMUMAB-TRBW
     Indication: Graves^ disease
     Dosage: 1000 MILLIGRAM, Q3WK
     Route: 040
     Dates: start: 20211123, end: 20211123
  2. TEPEZZA [Suspect]
     Active Substance: TEPROTUMUMAB-TRBW
     Indication: Toxic goitre
     Dosage: 2000 MILLIGRAM, Q3WK
     Route: 040
     Dates: start: 20211215, end: 20211215
  3. TEPEZZA [Suspect]
     Active Substance: TEPROTUMUMAB-TRBW
     Indication: Endocrine ophthalmopathy
     Dosage: 2000 MILLIGRAM, Q3WK
     Route: 040
     Dates: start: 20220105, end: 20220105
  4. TEPEZZA [Suspect]
     Active Substance: TEPROTUMUMAB-TRBW
     Dosage: 2000 MILLIGRAM, Q3WK
     Route: 040
     Dates: start: 20220126, end: 20220126
  5. TEPEZZA [Suspect]
     Active Substance: TEPROTUMUMAB-TRBW
     Dosage: 2000 MILLIGRAM, Q3WK
     Route: 040
     Dates: start: 20220216, end: 20220216
  6. TEPEZZA [Suspect]
     Active Substance: TEPROTUMUMAB-TRBW
     Dosage: 2000 MILLIGRAM, Q3WK
     Route: 040
     Dates: start: 20220309, end: 20220309
  7. TEPEZZA [Suspect]
     Active Substance: TEPROTUMUMAB-TRBW
     Dosage: 2000 MILLIGRAM, Q3WK
     Route: 040
     Dates: start: 20220330, end: 20220330
  8. TEPEZZA [Suspect]
     Active Substance: TEPROTUMUMAB-TRBW
     Dosage: 2000 MILLIGRAM, Q3WK
     Route: 040
     Dates: start: 20220420, end: 20220420
  9. BENADRYL [Concomitant]
     Active Substance: DIPHENHYDRAMINE HYDROCHLORIDE
     Dosage: 50 MILLIGRAM, QD
     Route: 065
  10. SOLU-MEDROL [Concomitant]
     Active Substance: METHYLPREDNISOLONE SODIUM SUCCINATE
     Dosage: 125 MILLIGRAM, QD
     Route: 065
  11. PEPCID [Concomitant]
     Active Substance: FAMOTIDINE
     Dosage: 20 MILLIGRAM, QD
     Route: 065
  12. ALBUTEROL [Concomitant]
     Active Substance: ALBUTEROL
     Dosage: 2.5 MILLIGRAM, QD (2.5 MG/3 ML) (0.083 PERCENT)
     Route: 065
  13. EPIPEN [Concomitant]
     Active Substance: EPINEPHRINE
     Dosage: 0.3 MILLIGRAM (0.3 MG/0.3 ML)
     Route: 065
  14. SODIUM CHLORIDE [Concomitant]
     Active Substance: SODIUM CHLORIDE
     Dosage: 0.9 PERCENT, QD
     Route: 065
  15. AMLODIPINE BESYLATE [Concomitant]
     Active Substance: AMLODIPINE BESYLATE
     Dosage: 5 MILLIGRAM, QD (EVERY DAY)
     Route: 048
  16. LATANOPROST [Concomitant]
     Active Substance: LATANOPROST
     Dosage: 0.005 PERCENT (1 GTTS EVERY NIGHT AT BEDTIME)
     Route: 047
  17. LEVOTHYROXINE SODIUM [Concomitant]
     Active Substance: LEVOTHYROXINE SODIUM
     Dosage: 75 MICROGRAM, QD (EVERYDAY)
     Route: 048
  18. LEVOTHYROXINE SODIUM [Concomitant]
     Active Substance: LEVOTHYROXINE SODIUM
     Dosage: 88 MICROGRAM, QD
     Route: 048
  19. OXYCODONE AND ACETAMINOPHEN [Concomitant]
     Active Substance: ACETAMINOPHEN\OXYCODONE HYDROCHLORIDE
     Dosage: 335 MILLIGRAM, Q12H (10-325 MG)
     Route: 048
  20. OXYCODONE AND ACETAMINOPHEN [Concomitant]
     Active Substance: ACETAMINOPHEN\OXYCODONE HYDROCHLORIDE
     Dosage: 335 MILLIGRAM, Q6H (10-325 MG)
     Route: 048
  21. REFRESH CLASSIC [Concomitant]
     Active Substance: POLYVINYL ALCOHOL\POVIDONE
     Route: 065
  22. SIMBRINZA [Concomitant]
     Active Substance: BRIMONIDINE TARTRATE\BRINZOLAMIDE
     Dosage: UNK, TID(1 GTTS, 1- 0.2 PERCENT)
     Route: 047
  23. SIMBRINZA [Concomitant]
     Active Substance: BRIMONIDINE TARTRATE\BRINZOLAMIDE
     Dosage: UNK, BID (1 GTTS, 1- 0.2 PERCENT)
     Route: 047
  24. SIMVASTATIN [Concomitant]
     Active Substance: SIMVASTATIN
     Dosage: 40 MILLIGRAM, QD (EVERYDAY AT BEDTIME)
     Route: 048
  25. XIIDRA [Concomitant]
     Active Substance: LIFITEGRAST
     Dosage: 5 PERCENT, BID (1 GTT)
     Route: 047
  26. TRAVATAN [Concomitant]
     Active Substance: TRAVOPROST
     Route: 065
  27. AZELASTINE [Concomitant]
     Active Substance: AZELASTINE
     Dosage: UNK, BID (137 MCG/INH SPRAY 2 SPRAYS)
     Route: 045
  28. FAMCICLOVIR [Concomitant]
     Active Substance: FAMCICLOVIR
     Dosage: 500 MILLIGRAM, Q8H
     Route: 048
  29. LYRICA [Concomitant]
     Active Substance: PREGABALIN
     Dosage: 25 MILLIGRAM, TID
     Route: 048
  30. OXYCODONE [Concomitant]
     Active Substance: OXYCODONE
     Dosage: 10 MILLIGRAM, Q12H
     Route: 048
  31. RESTASIS [Concomitant]
     Active Substance: CYCLOSPORINE
     Route: 065
  32. AMLODIPINE [Concomitant]
     Active Substance: AMLODIPINE BESYLATE
     Dosage: 5 MILLIGRAM, QD
     Route: 048

REACTIONS (36)
  - Endocrine ophthalmopathy [Unknown]
  - Graves^ disease [Unknown]
  - Type 2 diabetes mellitus [Unknown]
  - Deafness neurosensory [Unknown]
  - Pain [Unknown]
  - Emotional distress [Unknown]
  - Anxiety [Unknown]
  - Quality of life decreased [Unknown]
  - Discomfort [Unknown]
  - Tinnitus [Unknown]
  - Herpes zoster [Recovering/Resolving]
  - Dizziness [Unknown]
  - Irritable bowel syndrome [Not Recovered/Not Resolved]
  - Neck pain [Unknown]
  - Sciatica [Unknown]
  - Blood pressure systolic increased [Unknown]
  - High density lipoprotein decreased [Unknown]
  - Low density lipoprotein increased [Unknown]
  - Thyroxine free decreased [Unknown]
  - Blood potassium increased [Unknown]
  - Swelling [Unknown]
  - Anion gap decreased [Unknown]
  - Peyronie^s disease [Unknown]
  - Vertigo [Unknown]
  - Blood sodium increased [Unknown]
  - Blood potassium increased [Unknown]
  - Chronic sinusitis [Unknown]
  - Obesity [Recovered/Resolved]
  - Rhinitis allergic [Recovered/Resolved]
  - Product use complaint [Unknown]
  - Pyrexia [Unknown]
  - Oropharyngeal pain [Unknown]
  - Cough [Unknown]
  - SARS-CoV-2 test positive [Unknown]
  - Headache [Recovered/Resolved]
  - Asthenia [Unknown]

NARRATIVE: CASE EVENT DATE: 20211215
